FAERS Safety Report 8926228 (Version 1)
Quarter: 2012Q4

REPORT INFORMATION
  Report Type: 
  Country: SE (occurrence: SE)
  Receive Date: 20121126
  Receipt Date: 20121126
  Transmission Date: 20130627
  Serious: Yes (Other)
  Sender: FDA-Public Use
  Company Number: SE-009507513-1211SWE008767

PATIENT
  Age: 66 Year
  Sex: Female

DRUGS (1)
  1. LOSARTAN POTASSIUM [Suspect]
     Indication: MYOCARDIAL DEPRESSION
     Dosage: 50 mg, daily
     Route: 048
     Dates: start: 20100527, end: 20120620

REACTIONS (1)
  - Polyneuropathy [Not Recovered/Not Resolved]
